FAERS Safety Report 6157166-5 (Version None)
Quarter: 2009Q2

REPORT INFORMATION
  Report Type: 
  Country: None (occurrence: None)
  Receive Date: 20090416
  Receipt Date: 20090410
  Transmission Date: 20091009
  Serious: No
  Sender: FDA-Public Use
  Company Number: US-B.I. PHARMACEUTICALS,INC./RIDGEFIELD-2009-BP-03573BP

PATIENT
  Age: 76 Year
  Sex: Male

DRUGS (7)
  1. FLOMAX [Suspect]
     Indication: PROSTATOMEGALY
     Dosage: .4MG
     Route: 048
     Dates: start: 20081101, end: 20090317
  2. PLENDIL [Concomitant]
     Indication: BLOOD PRESSURE
     Dosage: 10MG
     Route: 048
     Dates: start: 20050101
  3. ALCON [Concomitant]
     Indication: BLOOD PRESSURE
     Dosage: 16MG
     Route: 048
     Dates: start: 20050101
  4. HYDROCHLOROTHIAZIDE [Concomitant]
     Indication: BLOOD PRESSURE
     Dosage: 6.25MG
     Route: 048
     Dates: start: 20050101
  5. VIAGRA [Concomitant]
     Indication: ERECTILE DYSFUNCTION
     Route: 048
     Dates: start: 20080101
  6. AVODART [Concomitant]
     Indication: PROSTATOMEGALY
     Dates: start: 20081101, end: 20090101
  7. WATER PILL [Concomitant]
     Dosage: 6MG

REACTIONS (2)
  - ERECTILE DYSFUNCTION [None]
  - SOMNOLENCE [None]
